FAERS Safety Report 6304953-6 (Version None)
Quarter: 2009Q3

REPORT INFORMATION
  Report Type: 
  Country: None (occurrence: None)
  Receive Date: 20090803
  Receipt Date: 20090609
  Transmission Date: 20100115
  Serious: Yes (Hospitalization)
  Sender: FDA-Public Use
  Company Number: 197822USA

PATIENT
  Age: 29 Year
  Sex: Female
  Weight: 59.4212 kg

DRUGS (1)
  1. EPOPROSTENOL SODIUM [Suspect]
     Indication: PULMONARY HYPERTENSION
     Dosage: 9 MG PER KG PER MIN; INTRAVENOUS DRIP
     Route: 041
     Dates: start: 20090514, end: 20090529

REACTIONS (3)
  - BLISTER [None]
  - RASH [None]
  - SWELLING [None]
